FAERS Safety Report 15106448 (Version 1)
Quarter: 2018Q3

REPORT INFORMATION
  Report Type: Report from Study
  Country: None (occurrence: DE)
  Receive Date: 20180704
  Receipt Date: 20180704
  Transmission Date: 20181010
  Serious: Yes (Death, Life-Threatening, Hospitalization)
  Sender: FDA-Public Use
  Company Number: DE-BAUSCH-BL-2018-018191

PATIENT
  Age: 70 Year
  Sex: Female
  Weight: 60 kg

DRUGS (14)
  1. PACLITAXEL. [Suspect]
     Active Substance: PACLITAXEL
     Dosage: 275 MG?278MG
     Route: 042
     Dates: start: 20130828, end: 20130828
  2. AVASTIN [Suspect]
     Active Substance: BEVACIZUMAB
     Dosage: 3 WEEKS
     Route: 042
     Dates: start: 20130828, end: 20130828
  3. METOPROLOL. [Concomitant]
     Active Substance: METOPROLOL
     Indication: HYPERTENSION
     Route: 048
     Dates: start: 201306
  4. PACLITAXEL. [Suspect]
     Active Substance: PACLITAXEL
     Dosage: 3 WEEKS
     Route: 042
     Dates: start: 20130918, end: 20130918
  5. METRONIDAZOL [Suspect]
     Active Substance: METRONIDAZOLE
     Indication: PRODUCT USED FOR UNKNOWN INDICATION
     Route: 065
  6. CEFTRIAXONE SODIUM. [Suspect]
     Active Substance: CEFTRIAXONE SODIUM
     Indication: PRODUCT USED FOR UNKNOWN INDICATION
     Route: 065
  7. AVASTIN [Suspect]
     Active Substance: BEVACIZUMAB
     Indication: OVARIAN CANCER
     Dosage: 1 (UNSPECIFIED UNIT) IN 3 WEEKS
     Route: 042
  8. PANTOPRAZOL [Concomitant]
     Active Substance: PANTOPRAZOLE SODIUM
     Indication: PRODUCT USED FOR UNKNOWN INDICATION
     Route: 048
     Dates: start: 2013
  9. CARBOPLATIN. [Suspect]
     Active Substance: CARBOPLATIN
     Route: 042
     Dates: start: 20130918, end: 20130918
  10. AVASTIN [Suspect]
     Active Substance: BEVACIZUMAB
     Dosage: 21 DAYS
     Route: 042
     Dates: start: 20130918, end: 20130918
  11. PACLITAXEL. [Suspect]
     Active Substance: PACLITAXEL
     Indication: OVARIAN CANCER
     Dosage: IN 21 DAYS; (275 MG?278MG)
     Route: 042
     Dates: start: 20130807, end: 20130807
  12. CARBOPLATIN. [Suspect]
     Active Substance: CARBOPLATIN
     Indication: OVARIAN CANCER
     Route: 042
     Dates: start: 20130828, end: 20130828
  13. CARBOPLATIN. [Suspect]
     Active Substance: CARBOPLATIN
     Dosage: 21 DAYS
     Route: 042
     Dates: start: 20130807, end: 20130807
  14. FELODIPIN [Concomitant]
     Active Substance: FELODIPINE
     Indication: PRODUCT USED FOR UNKNOWN INDICATION
     Route: 048

REACTIONS (8)
  - Multiple organ dysfunction syndrome [Fatal]
  - Tachycardia [Recovered/Resolved]
  - Haemoglobin decreased [Recovered/Resolved]
  - Acute kidney injury [Fatal]
  - Fatigue [Not Recovered/Not Resolved]
  - Tremor [Not Recovered/Not Resolved]
  - General physical health deterioration [Not Recovered/Not Resolved]
  - Urosepsis [Fatal]

NARRATIVE: CASE EVENT DATE: 20130828
